FAERS Safety Report 9247978 (Version 1)
Quarter: 2013Q2

REPORT INFORMATION
  Report Type: Spontaneous
  Country: US (occurrence: US)
  Receive Date: 20130423
  Receipt Date: 20130423
  Transmission Date: 20140414
  Serious: No
  Sender: FDA-Public Use
  Company Number: US-PFIZER INC-2013122325

PATIENT
  Sex: Female

DRUGS (1)
  1. PRISTIQ [Suspect]
     Dosage: UNK
     Dates: end: 201304

REACTIONS (4)
  - Influenza like illness [Unknown]
  - Dizziness [Unknown]
  - Nausea [Unknown]
  - Abdominal pain upper [Unknown]
